FAERS Safety Report 8197515-X (Version None)
Quarter: 2012Q1

REPORT INFORMATION
  Report Type: 
  Country: None (occurrence: None)
  Receive Date: 20120309
  Receipt Date: 20120223
  Transmission Date: 20120608
  Serious: Yes (Other)
  Sender: FDA-Public Use
  Company Number: US-ROCHE-794907

PATIENT
  Sex: Male
  Weight: 63.56 kg

DRUGS (6)
  1. SOTRET [Suspect]
     Route: 065
  2. ACCUTANE [Suspect]
     Route: 065
  3. SOTRET [Suspect]
     Route: 065
  4. ACCUTANE [Suspect]
     Indication: ACNE
     Route: 065
  5. ACCUTANE [Suspect]
     Route: 065
  6. SOTRET [Suspect]
     Indication: ACNE
     Route: 065

REACTIONS (4)
  - INFLAMMATORY BOWEL DISEASE [None]
  - COLITIS ULCERATIVE [None]
  - INJURY [None]
  - IRRITABLE BOWEL SYNDROME [None]
